FAERS Safety Report 5936761-X (Version None)
Quarter: 2008Q4

REPORT INFORMATION
  Report Type: 
  Country: None (occurrence: None)
  Receive Date: 20081030
  Receipt Date: 20081024
  Transmission Date: 20090506
  Serious: Yes (Hospitalization)
  Sender: FDA-Public Use
  Company Number: US-GILEAD-2008-0018653

PATIENT
  Sex: Female
  Weight: 179.78 kg

DRUGS (1)
  1. LETAIRIS [Suspect]
     Indication: PULMONARY ARTERIAL HYPERTENSION
     Route: 048
     Dates: start: 20080901, end: 20081005

REACTIONS (3)
  - ACUTE RESPIRATORY FAILURE [None]
  - CARDIAC FAILURE CHRONIC [None]
  - PULMONARY ARTERIAL HYPERTENSION [None]
